FAERS Safety Report 10057256 (Version 1)
Quarter: 2014Q2

REPORT INFORMATION
  Report Type: Spontaneous
  Country: US (occurrence: US)
  Receive Date: 20140403
  Receipt Date: 20140403
  Transmission Date: 20141212
  Serious: No
  Sender: FDA-Public Use
  Company Number: US-ASTRAZENECA-2013SE16157

PATIENT
  Age: 75 Year
  Sex: Female
  Weight: 45.4 kg

DRUGS (3)
  1. NEXIUM [Suspect]
     Indication: NAUSEA
     Route: 048
  2. NEXIUM [Suspect]
     Indication: NAUSEA
     Route: 048
  3. DEXILANT [Suspect]
     Route: 065

REACTIONS (5)
  - Flatulence [Unknown]
  - Diarrhoea [Unknown]
  - Abdominal discomfort [Unknown]
  - Dizziness [Recovered/Resolved]
  - Off label use [Unknown]
